FAERS Safety Report 15638137 (Version 1)
Quarter: 2018Q4

REPORT INFORMATION
  Report Type: Spontaneous
  Country: GB (occurrence: GB)
  Receive Date: 20181120
  Receipt Date: 20181120
  Transmission Date: 20190205
  Serious: Yes (Other)
  Sender: FDA-Public Use
  Company Number: GB-BAUSCH-BL-2018-031469

PATIENT
  Age: 58 Year
  Sex: Female

DRUGS (4)
  1. SALBUTAMOL [Suspect]
     Active Substance: ALBUTEROL
     Indication: ANAPHYLACTIC REACTION
     Route: 065
  2. ADRENALINE HCL [Suspect]
     Active Substance: EPINEPHRINE HYDROCHLORIDE
     Indication: ANAPHYLACTIC REACTION
     Route: 065
  3. PIRITON [Suspect]
     Active Substance: CHLORPHENIRAMINE MALEATE
     Indication: ANAPHYLACTIC REACTION
     Route: 065
  4. HYDROCORTISONE SODIUM SUCCINATE [Suspect]
     Active Substance: HYDROCORTISONE SODIUM SUCCINATE
     Indication: ANAPHYLACTIC REACTION
     Route: 065

REACTIONS (1)
  - Drug ineffective [Unknown]
